FAERS Safety Report 9297067 (Version 1)
Quarter: 2013Q2

REPORT INFORMATION
  Report Type: Spontaneous
  Country: DK (occurrence: DK)
  Receive Date: 20130519
  Receipt Date: 20130519
  Transmission Date: 20140414
  Serious: Yes (Other)
  Sender: FDA-Public Use
  Company Number: DK-009507513-1305DNK006959

PATIENT
  Age: 35 Year
  Sex: Male

DRUGS (3)
  1. TRILAFON [Suspect]
     Indication: SCHIZOPHRENIA
     Dosage: 8MG/3/245/8/1DAY
     Dates: start: 20120101, end: 20130418
  2. OLANZAPINE [Suspect]
     Dosage: 20MG/1/245/20/1DAY
     Dates: start: 20120101, end: 20130418
  3. LEPONEX [Suspect]
     Indication: SCHIZOPHRENIA
     Dosage: 100 MG/1/245/200/1DAY
     Dates: start: 20130404, end: 20130417

REACTIONS (4)
  - Neuroleptic malignant syndrome [Unknown]
  - Dizziness [Unknown]
  - Malaise [Unknown]
  - Body temperature increased [Unknown]
